FAERS Safety Report 16468573 (Version 1)
Quarter: 2019Q2

REPORT INFORMATION
  Report Type: Spontaneous
  Country: US (occurrence: US)
  Receive Date: 20190624
  Receipt Date: 20190624
  Transmission Date: 20190711
  Serious: Yes (Life-Threatening, Other)
  Sender: FDA-Public Use
  Company Number: US-PFIZER INC-2019263045

PATIENT
  Age: 64 Year
  Sex: Male
  Weight: 65.32 kg

DRUGS (1)
  1. CHANTIX [Suspect]
     Active Substance: VARENICLINE TARTRATE
     Indication: SMOKING CESSATION THERAPY
     Dosage: UNK,
     Route: 048
     Dates: start: 2017, end: 2017

REACTIONS (3)
  - Intellectual disability [Recovered/Resolved]
  - Blindness [Recovered/Resolved]
  - Skin reaction [Recovering/Resolving]

NARRATIVE: CASE EVENT DATE: 2017
